FAERS Safety Report 21677845 (Version 1)
Quarter: 2022Q4

REPORT INFORMATION
  Report Type: Report from Study
  Country: US (occurrence: US)
  Receive Date: 20221203
  Receipt Date: 20221203
  Transmission Date: 20230112
  Serious: Yes (Other)
  Sender: FDA-Public Use
  Company Number: US-ABBVIE-4221735

PATIENT
  Sex: Male

DRUGS (1)
  1. HUMIRA [Suspect]
     Active Substance: ADALIMUMAB
     Indication: Crohn^s disease
     Dosage: STRENGTH: 40MG
     Route: 058

REACTIONS (5)
  - Surgery [Unknown]
  - Injection site pain [Recovered/Resolved]
  - Colectomy [Unknown]
  - Liver abscess [Unknown]
  - Hepatic infection [Unknown]
